FAERS Safety Report 18170350 (Version 1)
Quarter: 2020Q3

REPORT INFORMATION
  Report Type: Spontaneous
  Country: KR (occurrence: KR)
  Receive Date: 20200819
  Receipt Date: 20200819
  Transmission Date: 20201103
  Serious: Yes (Life-Threatening, Hospitalization, Other)
  Sender: FDA-Public Use
  Company Number: KR-GLAXOSMITHKLINE-KR2020GSK163313

PATIENT
  Age: 75 Year
  Sex: Female

DRUGS (6)
  1. LEVODOPA + BENSERAZIDE [Suspect]
     Active Substance: BENSERAZIDE\LEVODOPA
     Indication: PARKINSON^S DISEASE
     Dosage: UNK UNK, TID
  2. DEXTROSE. [Suspect]
     Active Substance: DEXTROSE
     Indication: HYPERNATRAEMIA
     Dosage: 120 ML, Z PER HOUR
     Route: 042
  3. SODIUM CHLORIDE. [Suspect]
     Active Substance: SODIUM CHLORIDE
     Indication: HYPERNATRAEMIA
     Dosage: 120 ML, Z PER HOUR
     Route: 042
  4. AMANTADINE. [Suspect]
     Active Substance: AMANTADINE HYDROCHLORIDE
     Indication: PARKINSON^S DISEASE
     Dosage: 100 MG, BID
  5. DONEPEZIL. [Suspect]
     Active Substance: DONEPEZIL
     Indication: DEMENTIA
     Dosage: 5 MG, 1D
  6. ROPINIROLE. [Suspect]
     Active Substance: ROPINIROLE
     Indication: PARKINSON^S DISEASE
     Dosage: 0.5 MG, BID

REACTIONS (19)
  - Hyperthermia [Recovered/Resolved]
  - Withdrawal syndrome [Recovered/Resolved]
  - Mental status changes [Recovered/Resolved]
  - Hypernatraemia [Recovered/Resolved]
  - Blood lactate dehydrogenase increased [Unknown]
  - Upper gastrointestinal haemorrhage [Recovered/Resolved]
  - Musculoskeletal stiffness [Recovered/Resolved]
  - Mallory-Weiss syndrome [Recovered/Resolved]
  - Hyperhidrosis [Recovered/Resolved]
  - Parkinsonism hyperpyrexia syndrome [Recovered/Resolved]
  - Somnolence [Recovered/Resolved]
  - Haematemesis [Recovered/Resolved]
  - Tremor [Recovered/Resolved]
  - C-reactive protein increased [Unknown]
  - Hypovolaemia [Recovered/Resolved]
  - Dehydration [Recovered/Resolved]
  - Dysphagia [Recovered/Resolved]
  - Myoglobin blood increased [Unknown]
  - Drug ineffective [Unknown]
